FAERS Safety Report 11815121 (Version 1)
Quarter: 2015Q4

REPORT INFORMATION
  Report Type: Spontaneous
  Country: US (occurrence: US)
  Receive Date: 20151209
  Receipt Date: 20151209
  Transmission Date: 20160305
  Serious: No
  Sender: FDA-Public Use
  Company Number: US-SA-2015SA170306

PATIENT
  Age: 60 Year
  Sex: Male

DRUGS (4)
  1. TOUJEO [Suspect]
     Active Substance: INSULIN GLARGINE
     Indication: DIABETES MELLITUS
     Dosage: DOSE:5 UNIT(S)
     Route: 065
     Dates: start: 20150930
  2. SOLOSTAR [Concomitant]
     Active Substance: DEVICE
     Indication: DIABETES MELLITUS
     Dates: start: 20150930
  3. TOUJEO [Suspect]
     Active Substance: INSULIN GLARGINE
     Indication: DIABETES MELLITUS
     Dosage: DOSE:35 UNIT(S)
     Route: 065
     Dates: end: 20151020
  4. SOLOSTAR [Concomitant]
     Active Substance: DEVICE
     Indication: DIABETES MELLITUS
     Dates: end: 20151020

REACTIONS (3)
  - Dyspnoea [Unknown]
  - Dizziness [Unknown]
  - Weight decreased [Unknown]

NARRATIVE: CASE EVENT DATE: 2015
